FAERS Safety Report 6215584-0 (Version None)
Quarter: 2009Q2

REPORT INFORMATION
  Report Type: 
  Country: None (occurrence: None)
  Receive Date: 20090603
  Receipt Date: 20090603
  Transmission Date: 20091009
  Serious: Yes (Other)
  Sender: FDA-Public Use
  Company Number: None

PATIENT
  Sex: Male
  Weight: 65.7716 kg

DRUGS (3)
  1. SODIUM SULFACETIMIDE 10% AND SULFER 5% WASH [Suspect]
     Indication: ACNE
     Dosage: 1-2 GRAMS 2X/DAY WASH FACE SKIN
  2. SODIUM SULFACETIMIDE 10% AND SULFER 5% WASH [Suspect]
     Indication: SEBORRHOEIC DERMATITIS
     Dosage: 1-2 GRAMS 2X/DAY WASH FACE SKIN
  3. . [Concomitant]

REACTIONS (4)
  - ACNE [None]
  - PAIN [None]
  - PRODUCT SUBSTITUTION ISSUE [None]
  - SCAR [None]
